FAERS Safety Report 4286902-8 (Version None)
Quarter: 2004Q1

REPORT INFORMATION
  Report Type: 
  Country: None (occurrence: None)
  Receive Date: 20040204
  Receipt Date: 20040119
  Transmission Date: 20041129
  Serious: Yes (Hospitalization)
  Sender: FDA-Public Use
  Company Number: 2004PK00142

PATIENT
  Age: 64 Year
  Sex: Female
  Weight: 69.5 kg

DRUGS (6)
  1. SEROQUEL [Suspect]
     Indication: HYPERKINESIA
     Dosage: 300 MG DAILY PO
     Route: 048
     Dates: start: 20031009, end: 20031113
  2. SEROQUEL [Suspect]
     Indication: MUTISM
     Dosage: 300 MG DAILY PO
     Route: 048
     Dates: start: 20031009, end: 20031113
  3. SEROQUEL [Suspect]
     Indication: SCHIZOAFFECTIVE DISORDER
     Dosage: 300 MG DAILY PO
     Route: 048
     Dates: start: 20031009, end: 20031113
  4. ERGENYL [Concomitant]
  5. LEVOTHYROXINE SODIUM [Concomitant]
  6. LASIX [Concomitant]

REACTIONS (2)
  - ELECTROCARDIOGRAM T WAVE AMPLITUDE DECREASED [None]
  - VENTRICULAR EXTRASYSTOLES [None]
